FAERS Safety Report 6841031-1 (Version None)
Quarter: 2010Q3

REPORT INFORMATION
  Report Type: 
  Country: None (occurrence: None)
  Receive Date: 20100714
  Receipt Date: 20070622
  Transmission Date: 20110219
  Serious: No
  Sender: FDA-Public Use
  Company Number: US-PFIZER INC-2007053121

PATIENT
  Sex: Female
  Weight: 86.363 kg

DRUGS (4)
  1. CHANTIX [Suspect]
     Indication: SMOKING CESSATION THERAPY
     Dates: start: 20070615
  2. MS CONTIN [Concomitant]
  3. XANAX [Concomitant]
     Indication: SLEEP DISORDER
  4. ANTIBIOTICS [Concomitant]

REACTIONS (4)
  - ANXIETY [None]
  - MALAISE [None]
  - NAUSEA [None]
  - TREMOR [None]
